FAERS Safety Report 7633585-2 (Version None)
Quarter: 2011Q3

REPORT INFORMATION
  Report Type: 
  Country: None (occurrence: None)
  Receive Date: 20110725
  Receipt Date: 20110705
  Transmission Date: 20111222
  Serious: Yes (Hospitalization)
  Sender: FDA-Public Use
  Company Number: US-GLAXOSMITHKLINE-A0884630A

PATIENT
  Age: 59 Year
  Sex: Male
  Weight: 80.9 kg

DRUGS (7)
  1. HYZAAR [Concomitant]
  2. PROTONIX [Concomitant]
  3. INSULIN [Concomitant]
  4. ZESTRIL [Concomitant]
  5. AVANDIA [Suspect]
     Indication: DIABETES MELLITUS
     Dosage: 8MG PER DAY
     Route: 048
     Dates: start: 20000403, end: 20071001
  6. AVANDAMET [Suspect]
     Indication: DIABETES MELLITUS
     Route: 048
     Dates: start: 20040719, end: 20050115
  7. ZOCOR [Concomitant]

REACTIONS (6)
  - CARDIAC FAILURE CONGESTIVE [None]
  - MYOCARDIAL ISCHAEMIA [None]
  - CEREBROVASCULAR ACCIDENT [None]
  - DEPRESSION [None]
  - CARDIOMYOPATHY [None]
  - CRANIOCEREBRAL INJURY [None]
